FAERS Safety Report 9280060 (Version 1)
Quarter: 2013Q2

REPORT INFORMATION
  Report Type: Spontaneous
  Country: CN (occurrence: CN)
  Receive Date: 20130509
  Receipt Date: 20130509
  Transmission Date: 20140414
  Serious: Yes (Hospitalization)
  Sender: FDA-Public Use
  Company Number: CN-JNJFOC-20130415386

PATIENT
  Age: 4 Year
  Sex: Male
  Weight: 17 kg

DRUGS (8)
  1. CHILDREN^S TYLENOL PLUS COLD AND COUGH ORAL [Suspect]
     Indication: COUGH
     Route: 048
     Dates: start: 20130419, end: 20130420
  2. CHILDREN^S TYLENOL PLUS COLD AND COUGH ORAL [Suspect]
     Indication: NASOPHARYNGITIS
     Route: 048
     Dates: start: 20130419, end: 20130420
  3. RIBAVIRIN [Suspect]
     Indication: DIARRHOEA
     Route: 048
     Dates: start: 20130419
  4. RIBAVIRIN [Suspect]
     Indication: NASOPHARYNGITIS
     Route: 048
     Dates: start: 20130419
  5. RIBAVIRIN [Suspect]
     Indication: COUGH
     Route: 048
     Dates: start: 20130419
  6. LACTOBAC [Suspect]
     Indication: DIARRHOEA
     Route: 048
     Dates: start: 20130419
  7. TRADITIONAL CHINESE MEDICATION [Suspect]
     Indication: COUGH
     Route: 048
     Dates: start: 20130419
  8. TRADITIONAL CHINESE MEDICATION [Suspect]
     Indication: NASOPHARYNGITIS
     Route: 048
     Dates: start: 20130419

REACTIONS (3)
  - Renal injury [Recovered/Resolved]
  - Haematuria [Recovered/Resolved]
  - Drug dispensing error [Recovered/Resolved]
